FAERS Safety Report 4332234-9 (Version None)
Quarter: 2004Q1

REPORT INFORMATION
  Report Type: 
  Country: None (occurrence: None)
  Receive Date: 20040329
  Receipt Date: 20040317
  Transmission Date: 20041129
  Serious: Yes (Other)
  Sender: FDA-Public Use
  Company Number: 2004018559

PATIENT
  Age: 40 Year
  Sex: Male
  Weight: 117.4816 kg

DRUGS (12)
  1. GLUCOTROL XL [Suspect]
     Indication: DIABETES MELLITUS NON-INSULIN-DEPENDENT
     Dosage: 10 MG (DAILY), ORAL
     Route: 048
     Dates: start: 20021224
  2. GEMFIBROZIL [Concomitant]
  3. CLONAZEPAM [Concomitant]
  4. LITHIUM CARBONATE [Concomitant]
  5. METOPROLOL SUCCINATE [Concomitant]
  6. PROMETHAZINE [Concomitant]
  7. CYCLOBENZAPRINE HCL [Concomitant]
  8. OXYCODONE (OXYCODONE) [Concomitant]
  9. HYDROCODONE (HYDRCODONE) [Concomitant]
  10. NORTRIPTYLINE HCL [Concomitant]
  11. ALPRAZOLAM [Concomitant]
  12. ACETYLSALICYLIC ACID SRT [Concomitant]

REACTIONS (10)
  - BLOOD GLUCOSE DECREASED [None]
  - BLOOD GLUCOSE INCREASED [None]
  - CARDIAC DISORDER [None]
  - COLD SWEAT [None]
  - DEPRESSED LEVEL OF CONSCIOUSNESS [None]
  - FEELING ABNORMAL [None]
  - INSOMNIA [None]
  - OSTEOPOROSIS [None]
  - TREATMENT NONCOMPLIANCE [None]
  - WEIGHT DECREASED [None]
